FAERS Safety Report 4421125-0 (Version None)
Quarter: 2004Q3

REPORT INFORMATION
  Report Type: 
  Country: None (occurrence: None)
  Receive Date: 20040804
  Receipt Date: 20040708
  Transmission Date: 20050211
  Serious: Yes (Other)
  Sender: FDA-Public Use
  Company Number: US_0407104170

PATIENT
  Age: 73 Year
  Sex: Female

DRUGS (5)
  1. EVISTA [Suspect]
     Dates: start: 19980501, end: 20000101
  2. MIACALCIN [Concomitant]
  3. HORMONE REPLACEMENT THERAPY [Concomitant]
  4. DIDERAL (PROPRANOLOL HYDROCHLORIDE) [Concomitant]
  5. FOSAMAX [Concomitant]

REACTIONS (2)
  - DRUG INEFFECTIVE [None]
  - PELVIC FRACTURE [None]
